FAERS Safety Report 9850481 (Version 1)
Quarter: 2013Q4

REPORT INFORMATION
  Report Type: Spontaneous
  Country: US (occurrence: None)
  Receive Date: 20131226
  Receipt Date: 20131226
  Transmission Date: 20140711
  Serious: Yes (Other)
  Sender: FDA-Public Use
  Company Number: PHEH2013US001239

PATIENT
  Age: 64 Year
  Sex: Female

DRUGS (12)
  1. DIOVAN [Suspect]
  2. LANTUS (INSULIN GLARGINE) [Concomitant]
  3. CARVEDILOL (CARVEDILOL) [Concomitant]
  4. LEVOTHYROXINE (LEVOTHYROXINE) [Concomitant]
  5. HYDRALAZINE (HYDRALAZINE) [Concomitant]
  6. TORSEMIDE (TORASEMIDE) [Concomitant]
  7. LIPITOR (ATORVASTATIN CALCIUM) [Concomitant]
  8. VITAMIN D (ERGOCALCIFEROL) [Concomitant]
  9. LOVACARD (LOVASTATIN) [Concomitant]
  10. CALCITRAL (CALCIUM CARBONATE) [Concomitant]
  11. VITAMIN B-12 (CYANOCOBALAMIN) [Concomitant]
  12. COQ10 (UBIDECARENONE) [Concomitant]

REACTIONS (1)
  - Renal failure chronic [None]
